FAERS Safety Report 18587208 (Version 1)
Quarter: 2020Q4

REPORT INFORMATION
  Report Type: Report from Study
  Country: GB (occurrence: GB)
  Receive Date: 20201207
  Receipt Date: 20201207
  Transmission Date: 20210114
  Serious: Yes (Other)
  Sender: FDA-Public Use
  Company Number: GB-JNJFOC-20201210376

PATIENT
  Sex: Male

DRUGS (3)
  1. STELARA [Suspect]
     Active Substance: USTEKINUMAB
     Indication: PSORIASIS
     Route: 058
     Dates: start: 20150603
  2. STELARA [Suspect]
     Active Substance: USTEKINUMAB
  3. ASPRIN [Concomitant]
     Active Substance: ASPIRIN

REACTIONS (3)
  - Lower respiratory tract infection [Recovering/Resolving]
  - Product use issue [Unknown]
  - Off label use [Unknown]
